FAERS Safety Report 24720895 (Version 1)
Quarter: 2024Q4

REPORT INFORMATION
  Report Type: Spontaneous
  Country: DE (occurrence: DE)
  Receive Date: 20241211
  Receipt Date: 20241211
  Transmission Date: 20250115
  Serious: Yes (Hospitalization, Other)
  Sender: EMD SERONO INC
  Company Number: None

PATIENT
  Age: 33 Year
  Sex: Female

DRUGS (6)
  1. GONAL-F [Suspect]
     Active Substance: FOLLITROPIN
     Indication: Assisted reproductive technology
  2. LUVERIS [Suspect]
     Active Substance: LUTROPIN ALFA
     Indication: Assisted reproductive technology
  3. GONADOTROPHIN, CHORIONIC [Suspect]
     Active Substance: GONADOTROPHIN, CHORIONIC
     Indication: Assisted reproductive technology
  4. PROGESTERONE [Suspect]
     Active Substance: PROGESTERONE
     Indication: Assisted reproductive technology
  5. TRIPTORELIN [Suspect]
     Active Substance: TRIPTORELIN
     Indication: Assisted reproductive technology
  6. ESTRADIOL VALERATE [Suspect]
     Active Substance: ESTRADIOL VALERATE
     Indication: Assisted reproductive technology

REACTIONS (4)
  - Cardiovascular disorder [Recovered/Resolved]
  - Syncope [Recovered/Resolved]
  - Ovarian hyperstimulation syndrome [Recovered/Resolved]
  - Abdominal pain [Recovered/Resolved]

NARRATIVE: CASE EVENT DATE: 20241119
